FAERS Safety Report 14225496 (Version 1)
Quarter: 2017Q4

REPORT INFORMATION
  Report Type: Spontaneous
  Country: US (occurrence: None)
  Receive Date: 20171122
  Receipt Date: 20171122
  Transmission Date: 20180321
  Serious: Yes (Death)
  Sender: FDA-Public Use
  Company Number: None

PATIENT
  Age: 2 Year
  Sex: Male

DRUGS (5)
  1. DIVALPROEX [Concomitant]
     Active Substance: DIVALPROEX SODIUM
  2. LAMOTRIGINE. [Concomitant]
     Active Substance: LAMOTRIGINE
  3. FISH OIL [Concomitant]
     Active Substance: FISH OIL
  4. FAMOTIDINE. [Concomitant]
     Active Substance: FAMOTIDINE
  5. SABRIL [Suspect]
     Active Substance: VIGABATRIN
     Indication: EPILEPSY
     Dosage: 1.5ML (750MG) BID PO
     Route: 048
     Dates: start: 201603, end: 201711

REACTIONS (1)
  - Death [None]

NARRATIVE: CASE EVENT DATE: 20171102
